FAERS Safety Report 18964991 (Version 1)
Quarter: 2021Q1

REPORT INFORMATION
  Report Type: Spontaneous
  Country: US (occurrence: US)
  Receive Date: 20210303
  Receipt Date: 20210303
  Transmission Date: 20210420
  Serious: No
  Sender: FDA-Public Use
  Company Number: US-AMNEAL PHARMACEUTICALS-2020-AMRX-01754

PATIENT
  Sex: Female

DRUGS (2)
  1. RASAGILINE. [Suspect]
     Active Substance: RASAGILINE
     Indication: PARKINSONISM
     Dosage: UNK, 1 /DAY
     Route: 065
  2. RYTARY [Suspect]
     Active Substance: CARBIDOPA\LEVODOPA
     Indication: PARKINSONISM
     Dosage: HALF CAPSULE, 4 /DAY
     Route: 065

REACTIONS (4)
  - Adverse drug reaction [Unknown]
  - Wrong technique in product usage process [Unknown]
  - Gluten sensitivity [Unknown]
  - Diarrhoea [Unknown]
